FAERS Safety Report 18083341 (Version 3)
Quarter: 2020Q3

REPORT INFORMATION
  Report Type: Other
  Country: CA (occurrence: CA)
  Receive Date: 20200728
  Receipt Date: 20200825
  Transmission Date: 20201103
  Serious: Yes (Other)
  Sender: FDA-Public Use
  Company Number: CA-ROCHE-2647409

PATIENT
  Age: 49 Year
  Sex: Female
  Weight: 56 kg

DRUGS (7)
  1. OCREVUS [Suspect]
     Active Substance: OCRELIZUMAB
     Indication: RELAPSING-REMITTING MULTIPLE SCLEROSIS
     Dosage: 300 MG AT DAY 0 AND 14
     Route: 042
     Dates: start: 20180713
  2. TOVIAZ [Concomitant]
     Active Substance: FESOTERODINE FUMARATE
  3. FAMPYRA [Concomitant]
     Active Substance: DALFAMPRIDINE
  4. AMITRIPTYLINE [Concomitant]
     Active Substance: AMITRIPTYLINE
  5. OCREVUS [Suspect]
     Active Substance: OCRELIZUMAB
     Dosage: 600 MG EVERY 6 MONTH
     Route: 042
  6. BACLOFEN. [Concomitant]
     Active Substance: BACLOFEN
  7. APO?CITALOPRAM [Concomitant]
     Active Substance: CITALOPRAM HYDROBROMIDE

REACTIONS (2)
  - Urinary tract infection [Recovered/Resolved]
  - Memory impairment [Not Recovered/Not Resolved]

NARRATIVE: CASE EVENT DATE: 20200615
